FAERS Safety Report 10446849 (Version 2)
Quarter: 2014Q3

REPORT INFORMATION
  Report Type: Report from Study
  Country: CA (occurrence: CA)
  Receive Date: 20140911
  Receipt Date: 20140911
  Transmission Date: 20150326
  Serious: Yes (Hospitalization)
  Sender: FDA-Public Use
  Company Number: CA-IPSEN BIOPHARMACEUTICALS, INC.-2014-4385

PATIENT
  Age: 42 Year
  Sex: Female

DRUGS (1)
  1. SOMATULINE AUTOGEL [Suspect]
     Active Substance: LANREOTIDE ACETATE
     Indication: ACROMEGALY
     Dosage: 90MG
     Route: 058
     Dates: start: 20140805

REACTIONS (7)
  - Dysphagia [Unknown]
  - Thyroidectomy [Unknown]
  - Arthralgia [Recovering/Resolving]
  - Headache [Recovering/Resolving]
  - Diarrhoea [Recovered/Resolved]
  - Abdominal pain [Recovered/Resolved]
  - Nausea [Recovered/Resolved]

NARRATIVE: CASE EVENT DATE: 201408
